FAERS Safety Report 6168311-X (Version None)
Quarter: 2009Q2

REPORT INFORMATION
  Report Type: 
  Country: None (occurrence: None)
  Receive Date: 20090427
  Receipt Date: 20090416
  Transmission Date: 20091009
  Serious: Yes (Other)
  Sender: FDA-Public Use
  Company Number: US-PFIZER INC-2004220429US

PATIENT
  Sex: Female
  Weight: 89 kg

DRUGS (9)
  1. PROVERA [Suspect]
     Indication: HORMONE REPLACEMENT THERAPY
     Dosage: 5MG; 10MG
     Route: 048
     Dates: start: 19960529, end: 19970707
  2. PREMARIN [Suspect]
     Indication: HORMONE REPLACEMENT THERAPY
     Dosage: 0.625 MG, UNK
     Dates: start: 19960529, end: 19970707
  3. PREMPRO [Suspect]
     Indication: HORMONE REPLACEMENT THERAPY
     Dosage: 0.625/2.5
     Dates: start: 19970707, end: 19990801
  4. LOZOL [Concomitant]
     Indication: HYPERTENSION
     Route: 065
     Dates: start: 19920201
  5. LOZOL [Concomitant]
     Indication: DIURETIC THERAPY
  6. SYNTHROID [Concomitant]
     Indication: HYPOTHYROIDISM
     Route: 065
     Dates: start: 19930517
  7. FOSAMAX [Concomitant]
     Indication: OSTEOPOROSIS
     Route: 065
  8. PROZAC [Concomitant]
     Indication: DEPRESSION
     Route: 065
     Dates: start: 19990701, end: 19990901
  9. ACCUPRIL [Concomitant]
     Indication: HYPERTENSION

REACTIONS (1)
  - BREAST CANCER [None]
